FAERS Safety Report 6738744-9 (Version None)
Quarter: 2010Q2

REPORT INFORMATION
  Report Type: 
  Country: None (occurrence: None)
  Receive Date: 20100524
  Receipt Date: 20100513
  Transmission Date: 20101027
  Serious: Yes (Other)
  Sender: FDA-Public Use
  Company Number: GR-PFIZER INC-2010056468

PATIENT
  Age: 15 Year
  Sex: Female
  Weight: 58 kg

DRUGS (2)
  1. MEDROL [Suspect]
     Indication: ASTHMA
     Dosage: 8 MG, 1X/DAY
     Route: 048
  2. FLIXOTIDE ^GLAXO^ [Suspect]
     Indication: ASTHMA
     Route: 055

REACTIONS (1)
  - BONE FORMATION DECREASED [None]
